FAERS Safety Report 21477782 (Version 1)
Quarter: 2022Q4

REPORT INFORMATION
  Report Type: Report from Study
  Country: US (occurrence: US)
  Receive Date: 20221019
  Receipt Date: 20221019
  Transmission Date: 20230113
  Serious: Yes (Hospitalization, Other)
  Sender: FDA-Public Use
  Company Number: US-GILEAD-2022-0601604

PATIENT
  Age: 68 Year
  Sex: Female

DRUGS (7)
  1. AZTREONAM LYSINE [Suspect]
     Active Substance: AZTREONAM LYSINE
     Indication: Cystic fibrosis
     Dosage: 1 DOSAGE FORM, TID FOR 28 DAYS ON AND 28 DAYS OFF
     Route: 055
     Dates: start: 20220402
  2. TRIKAFTA [Concomitant]
     Active Substance: ELEXACAFTOR\IVACAFTOR\TEZACAFTOR
  3. GRAPE SEED 55,000 [Concomitant]
  4. PROBIOTIC FOR 60+ YEARS [Concomitant]
  5. VITAMIN D NOS [Concomitant]
     Active Substance: VITAMIN D NOS
  6. OZEMPIC [Concomitant]
     Active Substance: SEMAGLUTIDE
  7. SODIUM CHLORATE [Concomitant]
     Active Substance: SODIUM CHLORATE

REACTIONS (1)
  - Spinal operation [Unknown]
